FAERS Safety Report 8928004 (Version 1)
Quarter: 2012Q4

REPORT INFORMATION
  Report Type: Spontaneous
  Country: US (occurrence: None)
  Receive Date: 20121121
  Receipt Date: 20121121
  Transmission Date: 20130627
  Serious: No
  Sender: FDA-Public Use
  Company Number: None

PATIENT
  Age: 72 Year
  Sex: Male
  Weight: 72.7 kg

DRUGS (1)
  1. SYNTHROID, 50 MCG, ABBOTT [Suspect]
     Indication: THYROID DISORDER
     Route: 048

REACTIONS (1)
  - Blood pressure increased [None]
